FAERS Safety Report 5343369-6 (Version None)
Quarter: 2007Q2

REPORT INFORMATION
  Report Type: 
  Country: None (occurrence: None)
  Receive Date: 20070501
  Receipt Date: 20070123
  Transmission Date: 20071010
  Serious: No
  Sender: FDA-Public Use
  Company Number: 200618678US

PATIENT
  Age: 35 Year
  Sex: Female

DRUGS (1)
  1. KETEK [Suspect]
     Dosage: 400 MG QD
     Dates: start: 20061001

REACTIONS (1)
  - DRUG INEFFECTIVE [None]
